FAERS Safety Report 10095918 (Version 2)
Quarter: 2014Q2

REPORT INFORMATION
  Report Type: Spontaneous
  Country: US (occurrence: US)
  Receive Date: 20140422
  Receipt Date: 20140422
  Transmission Date: 20141212
  Serious: No
  Sender: FDA-Public Use
  Company Number: US-GILEAD-2013-0075029

PATIENT
  Sex: Female

DRUGS (3)
  1. LETAIRIS [Suspect]
     Indication: COR PULMONALE CHRONIC
     Dates: start: 20070825
  2. ADCIRCA [Concomitant]
  3. TYVASO [Concomitant]

REACTIONS (10)
  - Ocular hyperaemia [Unknown]
  - Lip pain [Unknown]
  - Eye swelling [Unknown]
  - Vision blurred [Unknown]
  - Oropharyngeal pain [Unknown]
  - Headache [Recovered/Resolved]
  - Throat irritation [Unknown]
  - Flushing [Unknown]
  - Dizziness [Unknown]
  - Dizziness [Unknown]
